FAERS Safety Report 24935688 (Version 1)
Quarter: 2025Q1

REPORT INFORMATION
  Report Type: Spontaneous
  Country: HK (occurrence: HK)
  Receive Date: 20250206
  Receipt Date: 20250206
  Transmission Date: 20250409
  Serious: Yes (Other)
  Sender: EXELIXIS
  Company Number: HK-IPSEN Group, Research and Development-2024-15334

PATIENT

DRUGS (1)
  1. CABOMETYX [Suspect]
     Active Substance: CABOZANTINIB S-MALATE
     Indication: Hepatocellular carcinoma
     Route: 065

REACTIONS (4)
  - Hypothyroidism [Unknown]
  - Palmar-plantar erythrodysaesthesia syndrome [Unknown]
  - Alanine aminotransferase increased [Unknown]
  - Diarrhoea [Unknown]
